FAERS Safety Report 17751178 (Version 4)
Quarter: 2020Q3

REPORT INFORMATION
  Report Type: Spontaneous
  Country: ES (occurrence: ES)
  Receive Date: 20200506
  Receipt Date: 20200716
  Transmission Date: 20201102
  Serious: Yes (Hospitalization, Other)
  Sender: FDA-Public Use
  Company Number: ES-PFIZER INC-2020180790

PATIENT
  Age: 68 Year
  Sex: Female
  Weight: 75 kg

DRUGS (21)
  1. NEUPOGEN [Concomitant]
     Active Substance: FILGRASTIM
     Dosage: 150000 IU/ML
     Dates: start: 20130819, end: 20130820
  2. NITROFURANTOINA [Concomitant]
     Active Substance: NITROFURANTOIN
     Dosage: UNK
     Dates: start: 20130805, end: 20130812
  3. METFORMIN [Suspect]
     Active Substance: METFORMIN HYDROCHLORIDE
     Indication: DIABETES MELLITUS
     Dosage: 850 MG
     Route: 048
     Dates: start: 201211, end: 201310
  4. RANITIDINE. [Concomitant]
     Active Substance: RANITIDINE
     Dosage: 300 MG
     Route: 042
     Dates: start: 201211
  5. TRASTUZUMAB. [Suspect]
     Active Substance: TRASTUZUMAB
     Dosage: MOST RECENT DOSE, RECEIVED ON 10/SEP/2013
     Route: 058
     Dates: start: 20130729, end: 20131001
  6. TRASTUZUMAB. [Suspect]
     Active Substance: TRASTUZUMAB
     Dosage: UNK
     Route: 058
     Dates: start: 20131022
  7. CARBOPLATIN. [Suspect]
     Active Substance: CARBOPLATIN
     Dosage: UNK, DAILY
     Dates: start: 20130701, end: 20130729
  8. CARBOPLATIN. [Suspect]
     Active Substance: CARBOPLATIN
     Dosage: UNK
     Route: 065
     Dates: start: 20130729, end: 20130729
  9. NEUPOGEN [Concomitant]
     Active Substance: FILGRASTIM
     Dosage: 6000 IU/ML
     Dates: start: 20130805, end: 20130807
  10. NEUPOGEN [Concomitant]
     Active Substance: FILGRASTIM
     Dosage: 6000 IU/ML
     Dates: start: 20130820, end: 20130824
  11. TRASTUZUMAB. [Suspect]
     Active Substance: TRASTUZUMAB
     Dosage: UNK
  12. CARBOPLATIN. [Suspect]
     Active Substance: CARBOPLATIN
     Dosage: UNK, DAILY
     Dates: start: 20130819, end: 20130819
  13. SIMVASTATIN. [Concomitant]
     Active Substance: SIMVASTATIN
     Dosage: 40 MG
     Dates: start: 201211
  14. PANTOPRAZOL [PANTOPRAZOLE] [Concomitant]
     Active Substance: PANTOPRAZOLE
     Dosage: UNK
     Dates: start: 201211
  15. DOMPERIDONE [Concomitant]
     Active Substance: DOMPERIDONE
     Dosage: 20 MG/ML
     Dates: start: 20130805
  16. PARACETAMOL [Concomitant]
     Active Substance: ACETAMINOPHEN
     Dosage: 500 MG
     Dates: start: 201211
  17. DOCETAXEL. [Suspect]
     Active Substance: DOCETAXEL
     Dosage: UNK, DAILY
     Dates: start: 20130701
  18. TRASTUZUMAB. [Suspect]
     Active Substance: TRASTUZUMAB
     Indication: HER2 POSITIVE BREAST CANCER
     Dosage: UNK
  19. TRASTUZUMAB. [Suspect]
     Active Substance: TRASTUZUMAB
     Dosage: 600 MG, EVERY 3 WEEKS. DATE OF LAST DOSE PRIOR TO SAE:10SEP2019, PERMENANTLY DISCONTINUED ON 15APR20
     Route: 058
     Dates: start: 20130701, end: 20130722
  20. FERROUS SULFATE. [Concomitant]
     Active Substance: FERROUS SULFATE
     Dosage: UNK
     Dates: start: 20130729, end: 20130730
  21. FOSFOMYCINE [Suspect]
     Active Substance: FOSFOMYCIN
     Dosage: 1 G EVERY 2 DAYS (1 G/ 24 HR)
     Dates: start: 20130704, end: 20130705

REACTIONS (4)
  - Diarrhoea [Recovered/Resolved]
  - Acute kidney injury [Recovered/Resolved]
  - Ejection fraction decreased [Unknown]
  - Blood creatinine decreased [Unknown]

NARRATIVE: CASE EVENT DATE: 20130706
